FAERS Safety Report 8227280-9 (Version None)
Quarter: 2012Q1

REPORT INFORMATION
  Report Type: 
  Country: None (occurrence: None)
  Receive Date: 20120307
  Receipt Date: 20091113
  Transmission Date: 20120608
  Serious: Yes (Other)
  Sender: FDA-Public Use
  Company Number: PHEH2009US13571

PATIENT
  Age: 44 Year
  Sex: Male

DRUGS (1)
  1. AFINITOR [Suspect]
     Indication: RENAL CANCER STAGE IV
     Dosage: 37.5 MG, UNK
     Dates: start: 20090621, end: 20090801

REACTIONS (2)
  - MUCOSAL INFLAMMATION [None]
  - DRUG INEFFECTIVE [None]
